FAERS Safety Report 17969890 (Version 2)
Quarter: 2024Q4

REPORT INFORMATION
  Report Type: Spontaneous
  Country: PT (occurrence: PT)
  Receive Date: 20200701
  Receipt Date: 20241209
  Transmission Date: 20250114
  Serious: Yes (Other)
  Sender: ALEXION PHARMACEUTICALS
  Company Number: 2020SE57771

PATIENT
  Age: 11 Year
  Weight: 31 kg

DRUGS (1)
  1. SELUMETINIB [Suspect]
     Active Substance: SELUMETINIB
     Indication: Neurofibroma
     Dosage: 25 MILLIGRAM, BID

REACTIONS (1)
  - Rash maculo-papular [Recovered/Resolved]
